FAERS Safety Report 6767491-2 (Version None)
Quarter: 2010Q2

REPORT INFORMATION
  Report Type: 
  Country: None (occurrence: None)
  Receive Date: 20100614
  Receipt Date: 20100602
  Transmission Date: 20101027
  Serious: Yes (Hospitalization)
  Sender: FDA-Public Use
  Company Number: PHHY2010FR36963

PATIENT
  Age: 18 Year
  Sex: Female

DRUGS (1)
  1. PARLODEL [Suspect]
     Dosage: 2.5 G
     Dates: start: 20100401, end: 20100517

REACTIONS (4)
  - CONFUSIONAL STATE [None]
  - DELIRIUM [None]
  - HALLUCINATION [None]
  - MENTAL DISORDER [None]
